FAERS Safety Report 4924171-3 (Version None)
Quarter: 2006Q1

REPORT INFORMATION
  Report Type: 
  Country: None (occurrence: None)
  Receive Date: 20060227
  Receipt Date: 20051122
  Transmission Date: 20060701
  Serious: No
  Sender: FDA-Public Use
  Company Number: US-GLAXOSMITHKLINE-A0584181A

PATIENT
  Age: 42 Year
  Sex: Female
  Weight: 77.3 kg

DRUGS (2)
  1. WELLBUTRIN XL [Suspect]
     Indication: DEPRESSION
     Dosage: 300MG IN THE MORNING
     Route: 048
     Dates: start: 20051005, end: 20051102
  2. XANAX [Concomitant]
     Dosage: 2.5MG PER DAY
     Route: 048

REACTIONS (1)
  - ABDOMINAL PAIN UPPER [None]
